FAERS Safety Report 8480390-3 (Version None)
Quarter: 2012Q3

REPORT INFORMATION
  Report Type: 
  Country: None (occurrence: None)
  Receive Date: 20120702
  Receipt Date: 20120618
  Transmission Date: 20120928
  Serious: Yes (Other)
  Sender: FDA-Public Use
  Company Number: NO-ROCHE-1082166

PATIENT
  Sex: Male

DRUGS (5)
  1. MABTHERA [Suspect]
     Indication: RHEUMATOID ARTHRITIS
     Dates: start: 20070601
  2. MABTHERA [Suspect]
     Dosage: MAINTENANCE DOSE. TREATMENT/CUMULATIVE DOSE OF RITUXIMAB RECEIVED WAS 5000MG PRIOR TO LON.
  3. CELLCEPT [Suspect]
     Indication: IMMUNOSUPPRESSION
  4. TACROLIMUS [Suspect]
     Indication: IMMUNOSUPPRESSION
  5. MABTHERA [Suspect]
     Dosage: TWO RITUXIMAB INFUSIONS OF 1000MG EACH, 2 WEEKS APART.

REACTIONS (2)
  - HYPOGAMMAGLOBULINAEMIA [None]
  - NEUTROPENIA [None]
